FAERS Safety Report 5241126-2 (Version None)
Quarter: 2007Q1

REPORT INFORMATION
  Report Type: 
  Country: None (occurrence: None)
  Receive Date: 20070214
  Receipt Date: 20070214
  Transmission Date: 20070707
  Serious: Yes (Hospitalization)
  Sender: FDA-Public Use
  Company Number: None

PATIENT
  Age: 61 Year
  Sex: Male
  Weight: 86.1834 kg

DRUGS (1)
  1. NATALIZUMAB -TYSABRI- 300MG IV BIOGEN IDEC [Suspect]
     Indication: MULTIPLE SCLEROSIS
     Dosage: 300MG MONTHLY IV
     Route: 042
     Dates: start: 20061201, end: 20061201

REACTIONS (18)
  - ACUTE PRERENAL FAILURE [None]
  - ADRENAL INSUFFICIENCY [None]
  - ADRENOCORTICAL INSUFFICIENCY ACUTE [None]
  - ASTHENIA [None]
  - CHRONIC OBSTRUCTIVE PULMONARY DISEASE [None]
  - HEPATITIS [None]
  - HYPOKALAEMIA [None]
  - HYPOTENSION [None]
  - HYPOVOLAEMIA [None]
  - LEUKOCYTOSIS [None]
  - LIVER FUNCTION TEST ABNORMAL [None]
  - MENTAL STATUS CHANGES [None]
  - MULTIPLE SCLEROSIS [None]
  - PYREXIA [None]
  - RESPIRATORY ALKALOSIS [None]
  - SEPSIS [None]
  - TACHYCARDIA [None]
  - TACHYPNOEA [None]
